FAERS Safety Report 16047411 (Version 1)
Quarter: 2019Q1

REPORT INFORMATION
  Report Type: Spontaneous
  Country: US (occurrence: US)
  Receive Date: 20190208
  Receipt Date: 20190208
  Transmission Date: 20190418
  Serious: No
  Sender: FDA-Public Use
  Company Number: None

PATIENT
  Age: 64 Week
  Sex: Male
  Weight: 95.25 kg

DRUGS (1)
  1. STELARA [Suspect]
     Active Substance: USTEKINUMAB
     Indication: PSORIASIS
     Dosage: INJECT 45MG  SUBCUTANEOUSLY ON DAY   0 AND DAY 28 AS DIRECTED
     Route: 058
     Dates: start: 201611

REACTIONS (2)
  - Eye operation [None]
  - Pruritus [None]
